FAERS Safety Report 9799635 (Version 2)
Quarter: 2014Q1

REPORT INFORMATION
  Report Type: Spontaneous
  Country: FR (occurrence: FR)
  Receive Date: 20140106
  Receipt Date: 20140313
  Transmission Date: 20141002
  Serious: Yes (Other)
  Sender: FDA-Public Use
  Company Number: FR-PFIZER INC-2013374339

PATIENT
  Age: 62 Year
  Sex: Male
  Weight: 70.6 kg

DRUGS (5)
  1. TAHOR [Suspect]
     Indication: DYSLIPIDAEMIA
     Dosage: 10 MG, DAILY
     Route: 048
     Dates: start: 20060225
  2. TAHOR [Suspect]
     Indication: TYPE 2 DIABETES MELLITUS
  3. LYRICA [Suspect]
     Indication: PAIN
     Dosage: 75 MG, 2X/DAY
     Route: 048
     Dates: start: 20061012
  4. JANUMET [Suspect]
     Indication: TYPE 2 DIABETES MELLITUS
     Dosage: 1000/50 MG, 2X/DAY
     Route: 048
     Dates: start: 20091028
  5. TARKA - SLOW RELEASE [Concomitant]
     Indication: HYPERTENSION
     Dosage: 180/2 MG, DAILY
     Route: 048
     Dates: start: 20060225

REACTIONS (8)
  - Colitis ulcerative [Unknown]
  - Movement disorder [Unknown]
  - Feeding disorder [Unknown]
  - Stress [Unknown]
  - Vomiting [Unknown]
  - Diarrhoea [Unknown]
  - Weight decreased [Unknown]
  - Drug intolerance [Unknown]
